FAERS Safety Report 24194189 (Version 4)
Quarter: 2024Q3

REPORT INFORMATION
  Report Type: Report from Study
  Country: FR (occurrence: FR)
  Receive Date: 20240809
  Receipt Date: 20240911
  Transmission Date: 20241017
  Serious: Yes (Death, Life-Threatening, Hospitalization, Disabling, Other)
  Sender: UCB
  Company Number: FR-UCBSA-2024033512

PATIENT
  Age: 75 Year
  Sex: Male
  Weight: 80 kg

DRUGS (16)
  1. ZILUCOPLAN [Suspect]
     Active Substance: ZILUCOPLAN
     Indication: Myasthenia gravis
     Dosage: 32.4 MILLIGRAM, ONCE DAILY (QD)
     Route: 058
     Dates: start: 20240201, end: 20240619
  2. ZILUCOPLAN [Suspect]
     Active Substance: ZILUCOPLAN
     Dosage: 32.49 MILLIGRAM, ONCE DAILY (QD)
     Dates: end: 20240727
  3. CELLCEPT [Concomitant]
     Active Substance: MYCOPHENOLATE MOFETIL
     Indication: Myasthenia gravis
     Dosage: UNK
     Route: 048
  4. BISOPROLOL [Concomitant]
     Active Substance: BISOPROLOL\BISOPROLOL FUMARATE
     Indication: Product used for unknown indication
     Dosage: 1.5 MILLIGRAM IN THE MORNING
  5. LANSOPRAZOLE [Concomitant]
     Active Substance: LANSOPRAZOLE
     Indication: Product used for unknown indication
     Dosage: 30 MILLIGRAM IN THE MORNING
  6. KARDEGIC [Concomitant]
     Active Substance: ASPIRIN DL-LYSINE
     Indication: Product used for unknown indication
     Dosage: 75 MILLIGRAM AT LUNCH TIME
  7. PREDNISOLONE [Concomitant]
     Active Substance: PREDNISOLONE
     Indication: Product used for unknown indication
     Dosage: 20 MILLIGRAM IN THE MORNING
  8. RAMIPRIL [Concomitant]
     Active Substance: RAMIPRIL
     Indication: Product used for unknown indication
     Dosage: 2.5 MILLIGRAM IN THE EVENING
  9. NOVORAPID [Concomitant]
     Active Substance: INSULIN ASPART
     Indication: Product used for unknown indication
  10. GLICLAZIDE [Concomitant]
     Active Substance: GLICLAZIDE
     Indication: Product used for unknown indication
     Dosage: 60 MILLIGRAM, 0.5 TABLET MORNING AND EVENING
  11. LOVENOX [Concomitant]
     Active Substance: ENOXAPARIN SODIUM
     Indication: Product used for unknown indication
     Dosage: 4000 UNITS IN THE EVENING
  12. CEFEPIME [Concomitant]
     Active Substance: CEFEPIME HYDROCHLORIDE
     Indication: Product used for unknown indication
     Dosage: 2G 3/D
     Dates: start: 20240624
  13. AMOXICILLIN [Concomitant]
     Active Substance: AMOXICILLIN
     Indication: Product used for unknown indication
     Dosage: UNK
     Dates: start: 20240718
  14. ACYCLOVIR [Concomitant]
     Active Substance: ACYCLOVIR
     Indication: Product used for unknown indication
     Dosage: 21.2 MG/L
     Dates: start: 20240624
  15. VALACYCLOVIR [Concomitant]
     Active Substance: VALACYCLOVIR HYDROCHLORIDE
     Indication: Herpes zoster
     Dosage: 3 G/DAY FOR 7 DAYS
  16. AUGMENTIN [Concomitant]
     Active Substance: AMOXICILLIN\CLAVULANATE POTASSIUM
     Indication: Lung disorder
     Dosage: 1 G 3 X PER DAY.

REACTIONS (60)
  - Lung disorder [Fatal]
  - General physical health deterioration [Unknown]
  - Respiratory disorder [Unknown]
  - Encephalopathy [Recovered/Resolved with Sequelae]
  - Nosocomial infection [Recovered/Resolved with Sequelae]
  - Epilepsy [Unknown]
  - Herpes zoster [Recovered/Resolved with Sequelae]
  - Myasthenia gravis [Recovered/Resolved with Sequelae]
  - Ischaemic stroke [Recovered/Resolved with Sequelae]
  - Pneumonia [Not Recovered/Not Resolved]
  - Depressed level of consciousness [Unknown]
  - Dermo-hypodermitis [Unknown]
  - Hypervigilance [Unknown]
  - Acute kidney injury [Unknown]
  - Inflammation [Unknown]
  - Bullous erysipelas [Unknown]
  - Acute pulmonary oedema [Unknown]
  - Central venous catheterisation [Unknown]
  - Coma [Unknown]
  - Gastrointestinal haemorrhage [Unknown]
  - Thrombocytopenia [Unknown]
  - Bedridden [Unknown]
  - Malnutrition [Unknown]
  - Electrolyte imbalance [Unknown]
  - Heart rate decreased [Unknown]
  - C-reactive protein increased [Unknown]
  - Humerus fracture [Unknown]
  - Dysphagia [Unknown]
  - Hypercapnia [Unknown]
  - Erythema [Unknown]
  - Varicella zoster virus infection [Unknown]
  - Cardiomegaly [Unknown]
  - Anaemia macrocytic [Not Recovered/Not Resolved]
  - Dehydration [Unknown]
  - Hypervolaemia [Unknown]
  - Decubitus ulcer [Unknown]
  - Decreased appetite [Unknown]
  - Red blood cell count decreased [Unknown]
  - Haematocrit decreased [Not Recovered/Not Resolved]
  - Neutrophil count increased [Unknown]
  - Basophil count decreased [Unknown]
  - Monocyte count decreased [Unknown]
  - Blood albumin decreased [Unknown]
  - Aspartate aminotransferase increased [Unknown]
  - Alanine aminotransferase increased [Unknown]
  - Gamma-glutamyltransferase increased [Unknown]
  - Blood alkaline phosphatase increased [Unknown]
  - Proteinuria [Unknown]
  - Creatinine urine increased [Unknown]
  - Mean cell volume increased [Unknown]
  - Mean cell volume decreased [Unknown]
  - Blood pressure abnormal [Unknown]
  - Confusional state [Unknown]
  - Decreased appetite [Unknown]
  - Rhonchi [Unknown]
  - Microalbuminuria [Unknown]
  - Sarcopenia [Unknown]
  - Somnolence [Unknown]
  - Drug ineffective [Unknown]
  - Therapy interrupted [Unknown]

NARRATIVE: CASE EVENT DATE: 20230615
